FAERS Safety Report 4715452-7 (Version None)
Quarter: 2005Q3

REPORT INFORMATION
  Report Type: 
  Country: None (occurrence: None)
  Receive Date: 20050715
  Receipt Date: 20050715
  Transmission Date: 20060218
  Serious: Yes (Disabling)
  Sender: FDA-Public Use
  Company Number: None

PATIENT
  Age: 39 Year
  Sex: Female
  Weight: 50.3493 kg

DRUGS (21)
  1. AMIKACIN [Suspect]
     Indication: MYCOBACTERIUM AVIUM COMPLEX INFECTION
     Dosage: 475 MG IV Q 12 H
     Route: 042
     Dates: start: 20050308, end: 20050620
  2. AZITHROMIN [Concomitant]
  3. AZITHROMYCIN [Concomitant]
  4. FENTANYL [Concomitant]
  5. FLUCONAZOLE [Concomitant]
  6. LEVOFLOXACIN [Concomitant]
  7. ONDANSETRON [Concomitant]
  8. GABAPENTIN [Concomitant]
  9. NALOXONE [Concomitant]
  10. ENFUVIRTIDE [Concomitant]
  11. TENOFOVIR [Concomitant]
  12. ACYCLOVIR [Concomitant]
  13. RIFABUTIN [Concomitant]
  14. LAMIVUDINE [Concomitant]
  15. STAVUDINE [Concomitant]
  16. TPN [Concomitant]
  17. LORATADINE [Concomitant]
  18. ESCITALOPRAM OXALATE [Concomitant]
  19. DAPSONE [Concomitant]
  20. ETHAMBUTOL [Concomitant]
  21. LIDOCAINE [Concomitant]

REACTIONS (4)
  - DEAFNESS [None]
  - EAR DISCOMFORT [None]
  - NEUROPATHY [None]
  - OTOTOXICITY [None]
